FAERS Safety Report 8984563 (Version 1)
Quarter: 2012Q4

REPORT INFORMATION
  Report Type: Spontaneous
  Country: BR (occurrence: None)
  Receive Date: 20121214
  Receipt Date: 20121214
  Transmission Date: 20130627
  Serious: Yes (Death, Hospitalization)
  Sender: FDA-Public Use
  Company Number: ENTC2012-0553

PATIENT
  Age: 78 Year
  Sex: Female

DRUGS (1)
  1. STALEVO (LEVODOPA, CARBIDOPA, ENTACAPONE) [Suspect]
     Indication: ALZHEIMER^S DISEASE
     Dosage: 2 tablets
     Route: 048

REACTIONS (5)
  - Parkinson^s disease [None]
  - Dementia Alzheimer^s type [None]
  - Off label use [None]
  - Femur fracture [None]
  - Fall [None]
